FAERS Safety Report 13137047 (Version 1)
Quarter: 2017Q1

REPORT INFORMATION
  Report Type: Spontaneous
  Country: RU (occurrence: RU)
  Receive Date: 20170123
  Receipt Date: 20170123
  Transmission Date: 20170428
  Serious: Yes (Other)
  Sender: FDA-Public Use
  Company Number: RU-ACCORD-047684

PATIENT
  Age: 31 Year
  Sex: Male

DRUGS (3)
  1. VEMURAFENIB [Suspect]
     Active Substance: VEMURAFENIB
     Indication: METASTASES TO LUNG
     Dosage: TWICE A DAY
  2. IRINOTECAN [Suspect]
     Active Substance: IRINOTECAN
     Indication: METASTASES TO LUNG
     Dosage: REDUCED UP TO 160 MG/M^2
  3. PANITUMUMAB [Suspect]
     Active Substance: PANITUMUMAB
     Indication: METASTASES TO LUNG
     Dosage: BIWEEKLY

REACTIONS (7)
  - Alopecia [Unknown]
  - Epidermal naevus syndrome [Recovered/Resolved]
  - Nausea [Unknown]
  - Diarrhoea [Unknown]
  - Hypertrichosis [Unknown]
  - Paronychia [Recovered/Resolved]
  - Skin toxicity [Recovering/Resolving]
